FAERS Safety Report 14670913 (Version 1)
Quarter: 2018Q1

REPORT INFORMATION
  Report Type: Report from Study
  Country: US (occurrence: US)
  Receive Date: 20180322
  Receipt Date: 20180322
  Transmission Date: 20180509
  Serious: Yes (Hospitalization)
  Sender: FDA-Public Use
  Company Number: US-BIO-PHARM, INC -2044335

PATIENT
  Age: 56 Year
  Sex: Female
  Weight: 58.14 kg

DRUGS (1)
  1. PHENOBARBITAL. [Suspect]
     Active Substance: PHENOBARBITAL

REACTIONS (1)
  - Drug interaction [Recovered/Resolved]
